FAERS Safety Report 5521943-1 (Version None)
Quarter: 2007Q4

REPORT INFORMATION
  Report Type: 
  Country: None (occurrence: None)
  Receive Date: 20071120
  Receipt Date: 20070215
  Transmission Date: 20080405
  Serious: No
  Sender: FDA-Public Use
  Company Number: US-BRISTOL-MYERS SQUIBB COMPANY-13679659

PATIENT
  Sex: Female
  Weight: 77 kg

DRUGS (3)
  1. AVALIDE [Suspect]
     Indication: HYPERTENSION
     Dates: start: 20030701
  2. LEXAPRO [Concomitant]
  3. ARTHROTEC [Concomitant]

REACTIONS (2)
  - PARAESTHESIA [None]
  - TORTICOLLIS [None]
